FAERS Safety Report 14698465 (Version 1)
Quarter: 2018Q1

REPORT INFORMATION
  Report Type: Spontaneous
  Country: HR (occurrence: HR)
  Receive Date: 20180330
  Receipt Date: 20180330
  Transmission Date: 20180509
  Serious: Yes (Other)
  Sender: FDA-Public Use
  Company Number: HR-BAXTER-2018BAX009641

PATIENT
  Age: 57 Year
  Sex: Female

DRUGS (5)
  1. PACLITAXEL. [Suspect]
     Active Substance: PACLITAXEL
     Indication: INVASIVE LOBULAR BREAST CARCINOMA
     Dosage: UNK UNK, QW (12), DOSE: 1(UNITS NOT REPORTED)
     Route: 065
     Dates: start: 201404, end: 201410
  2. DOXORUBICIN [Suspect]
     Active Substance: DOXORUBICIN
     Indication: INVASIVE LOBULAR BREAST CARCINOMA
     Dosage: GIVEN AS AC X4, IN COMBINATION WITH CYCLOPHOSPHAMIDE
     Route: 065
     Dates: start: 201404, end: 201410
  3. TAMOXIFEN [Suspect]
     Active Substance: TAMOXIFEN
     Indication: INVASIVE LOBULAR BREAST CARCINOMA
     Dosage: UNK
     Route: 065
     Dates: start: 201411, end: 201609
  4. FULVESTRANT. [Suspect]
     Active Substance: FULVESTRANT
     Indication: INVASIVE LOBULAR BREAST CARCINOMA
     Dosage: UNK
     Route: 065
     Dates: start: 201609, end: 201802
  5. ENDOXAN PRASAK ZA OTOPINU ZA INJEKCIJU 1 G [Suspect]
     Active Substance: CYCLOPHOSPHAMIDE
     Indication: INVASIVE LOBULAR BREAST CARCINOMA
     Dosage: GIVEN AS AC X4, IN COMBINATION WITH DOXORUBICIN
     Route: 065
     Dates: start: 201404, end: 201410

REACTIONS (3)
  - Malignant neoplasm progression [Not Recovered/Not Resolved]
  - Drug effect incomplete [Unknown]
  - Breast cancer [Not Recovered/Not Resolved]
